FAERS Safety Report 4854958-7 (Version None)
Quarter: 2005Q4

REPORT INFORMATION
  Report Type: 
  Country: None (occurrence: None)
  Receive Date: 20051214
  Receipt Date: 20051202
  Transmission Date: 20060501
  Serious: Yes (Other)
  Sender: FDA-Public Use
  Company Number: GBWYE201902DEC05

PATIENT
  Age: 43 Year
  Sex: Female

DRUGS (1)
  1. EFFEXOR XR [Suspect]
     Dosage: INCREASED FROM 225 MG TO 300 MG

REACTIONS (2)
  - ELECTROCARDIOGRAM Q WAVES [None]
  - MYOCARDIAL INFARCTION [None]
